FAERS Safety Report 23675876 (Version 1)
Quarter: 2024Q1

REPORT INFORMATION
  Report Type: Spontaneous
  Country: US (occurrence: US)
  Receive Date: 20240327
  Receipt Date: 20240327
  Transmission Date: 20240410
  Serious: No
  Sender: FDA-Public Use
  Company Number: US-JNJFOC-20240369767

PATIENT
  Age: 45 Year

DRUGS (1)
  1. SPRAVATO [Suspect]
     Active Substance: ESKETAMINE
     Indication: Product used for unknown indication
     Dates: start: 202309

REACTIONS (2)
  - Dissociation [Unknown]
  - Panic attack [Unknown]

NARRATIVE: CASE EVENT DATE: 20240222
